FAERS Safety Report 8816549 (Version 1)
Quarter: 2012Q4

REPORT INFORMATION
  Report Type: Spontaneous
  Country: US (occurrence: None)
  Receive Date: 20121001
  Receipt Date: 20121001
  Transmission Date: 20130627
  Serious: Yes (Hospitalization)
  Sender: FDA-Public Use
  Company Number: None

PATIENT
  Age: 78 Year
  Sex: Male
  Weight: 80.4 kg

DRUGS (1)
  1. CIPROFLOXACIN [Suspect]
     Indication: CELLULITIS OF FOOT
     Route: 048
     Dates: start: 20120728, end: 20120807

REACTIONS (3)
  - Diarrhoea [None]
  - Weight decreased [None]
  - Clostridium test positive [None]
